FAERS Safety Report 16627400 (Version 1)
Quarter: 2019Q3

REPORT INFORMATION
  Report Type: Spontaneous
  Country: JP (occurrence: JP)
  Receive Date: 20190724
  Receipt Date: 20190724
  Transmission Date: 20191004
  Serious: Yes (Death)
  Sender: FDA-Public Use
  Company Number: JP-009507513-1907JPN013587

PATIENT
  Age: 76 Year
  Sex: Male

DRUGS (2)
  1. TEDIZOLID PHOSPHATE. [Suspect]
     Active Substance: TEDIZOLID PHOSPHATE
     Dosage: 200 MG, QD
     Route: 048
     Dates: start: 201812, end: 201901
  2. CUBICIN [Concomitant]
     Active Substance: DAPTOMYCIN
     Dosage: 350 MILLIGRAM
     Route: 041
     Dates: start: 201811, end: 201901

REACTIONS (1)
  - Immunodeficiency [Fatal]
